FAERS Safety Report 4688014-8 (Version None)
Quarter: 2005Q2

REPORT INFORMATION
  Report Type: 
  Country: None (occurrence: None)
  Receive Date: 20050610
  Receipt Date: 20050603
  Transmission Date: 20051028
  Serious: Yes (Other)
  Sender: FDA-Public Use
  Company Number: 2005UW08594

PATIENT
  Sex: Female

DRUGS (1)
  1. NOLVADEX [Suspect]
     Route: 048
     Dates: start: 20021201

REACTIONS (1)
  - HIP ARTHROPLASTY [None]
